FAERS Safety Report 5821108-X (Version None)
Quarter: 2008Q3

REPORT INFORMATION
  Report Type: 
  Country: None (occurrence: None)
  Receive Date: 20080724
  Receipt Date: 20080714
  Transmission Date: 20090109
  Serious: Yes (Hospitalization)
  Sender: FDA-Public Use
  Company Number: DE-WATSON-2008-04180

PATIENT
  Age: 75 Year
  Sex: Male

DRUGS (1)
  1. PYRIDOXINE HYDROCHLORIDE [Suspect]
     Indication: VITAMIN B6 DEFICIENCY
     Dosage: 9.6 G, DAILY

REACTIONS (1)
  - PERIPHERAL SENSORIMOTOR NEUROPATHY [None]
